FAERS Safety Report 13594562 (Version 1)
Quarter: 2017Q2

REPORT INFORMATION
  Report Type: Spontaneous
  Country: DE (occurrence: DE)
  Receive Date: 20170530
  Receipt Date: 20170530
  Transmission Date: 20170830
  Serious: Yes (Hospitalization)
  Sender: FDA-Public Use
  Company Number: GXKR2017DE002895

PATIENT

DRUGS (9)
  1. VALPROATE SODIUM. [Interacting]
     Active Substance: VALPROATE SODIUM
     Dosage: 1200 MG, UNK
     Route: 048
     Dates: start: 20161220, end: 20170110
  2. VALPROATE SODIUM. [Interacting]
     Active Substance: VALPROATE SODIUM
     Dosage: 600 MG, UNK
     Route: 048
     Dates: start: 20170111, end: 20170118
  3. OLANZAPIN [Interacting]
     Active Substance: OLANZAPINE
     Indication: PRODUCT USED FOR UNKNOWN INDICATION
     Dosage: 15 MG, UNK
     Route: 048
     Dates: start: 2016, end: 20170117
  4. OLANZAPIN [Interacting]
     Active Substance: OLANZAPINE
     Dosage: 10 MG, UNK
     Route: 048
     Dates: start: 20170118, end: 20170121
  5. ZYPADHERA [Interacting]
     Active Substance: OLANZAPINE PAMOATE
     Indication: PRODUCT USED FOR UNKNOWN INDICATION
     Dosage: 300 MG, UNK
     Route: 030
     Dates: start: 2016, end: 20170112
  6. VALPROATE SODIUM. [Interacting]
     Active Substance: VALPROATE SODIUM
     Dosage: 300 MG, UNK
     Route: 048
     Dates: start: 20170119, end: 20170123
  7. VALPROATE SODIUM. [Suspect]
     Active Substance: VALPROATE SODIUM
     Indication: PRODUCT USED FOR UNKNOWN INDICATION
     Dosage: 1800 MG, UNK
     Route: 048
     Dates: start: 2011, end: 20161212
  8. VALPROATE SODIUM. [Interacting]
     Active Substance: VALPROATE SODIUM
     Dosage: 1500 MG, UNK
     Route: 048
     Dates: start: 20161213, end: 20161219
  9. ASENAPINE [Interacting]
     Active Substance: ASENAPINE
     Indication: PRODUCT USED FOR UNKNOWN INDICATION
     Dosage: 5 MG, UNK
     Route: 048
     Dates: start: 2016, end: 20170117

REACTIONS (1)
  - Parkinsonism [Recovering/Resolving]

NARRATIVE: CASE EVENT DATE: 20161101
